FAERS Safety Report 7934108-0 (Version None)
Quarter: 2011Q4

REPORT INFORMATION
  Report Type: 
  Country: None (occurrence: None)
  Receive Date: 20111122
  Receipt Date: 20111109
  Transmission Date: 20120403
  Serious: No
  Sender: FDA-Public Use
  Company Number: US-B.I. PHARMACEUTICALS,INC./RIDGEFIELD-2011-BP-21426BP

PATIENT
  Sex: Female
  Weight: 63.05 kg

DRUGS (7)
  1. PRADAXA [Suspect]
     Indication: ATRIAL FIBRILLATION
     Dosage: 300 MG
     Route: 048
     Dates: start: 20110728, end: 20110914
  2. PRADAXA [Suspect]
     Indication: CEREBROVASCULAR ACCIDENT PROPHYLAXIS
  3. CARTIA XT [Concomitant]
     Indication: PALPITATIONS
  4. CARDIZEM [Concomitant]
  5. PREMARIN [Concomitant]
  6. LIPITOR [Concomitant]
     Indication: BLOOD CHOLESTEROL INCREASED
  7. XANAX [Concomitant]
     Indication: ANXIETY

REACTIONS (4)
  - MELAENA [None]
  - GAIT DISTURBANCE [None]
  - DYSPNOEA [None]
  - INSOMNIA [None]
